FAERS Safety Report 7545690-X (Version None)
Quarter: 2011Q2

REPORT INFORMATION
  Report Type: 
  Country: None (occurrence: None)
  Receive Date: 20110613
  Receipt Date: 20110613
  Transmission Date: 20111010
  Serious: Yes (Other)
  Sender: FDA-Public Use
  Company Number: None

PATIENT
  Sex: Male
  Weight: 70.3075 kg

DRUGS (1)
  1. LEVAQUIN [Suspect]
     Indication: SINUSITIS
     Dosage: 1 DAILY PO
     Route: 048
     Dates: start: 20110509, end: 20110509

REACTIONS (5)
  - TENDON PAIN [None]
  - NERVOUSNESS [None]
  - ABASIA [None]
  - MUSCLE TIGHTNESS [None]
  - PAIN IN EXTREMITY [None]
